FAERS Safety Report 23213819 (Version 2)
Quarter: 2024Q1

REPORT INFORMATION
  Report Type: Spontaneous
  Country: US (occurrence: US)
  Receive Date: 20231121
  Receipt Date: 20240213
  Transmission Date: 20240410
  Serious: Yes (Hospitalization)
  Sender: FDA-Public Use
  Company Number: US-TEVA-2023-US-2946835

PATIENT
  Age: 95 Year
  Sex: Female

DRUGS (1)
  1. ALLOPURINOL [Suspect]
     Active Substance: ALLOPURINOL
     Indication: Gout
     Route: 048

REACTIONS (7)
  - Stevens-Johnson syndrome [Recovered/Resolved]
  - Visual impairment [Recovered/Resolved]
  - Skin exfoliation [Recovered/Resolved]
  - Cellulitis [Recovered/Resolved]
  - Staphylococcal bacteraemia [Recovered/Resolved]
  - Acute kidney injury [Recovered/Resolved]
  - Eye disorder [Recovered/Resolved]
